FAERS Safety Report 16853806 (Version 1)
Quarter: 2019Q3

REPORT INFORMATION
  Report Type: Spontaneous
  Country: US (occurrence: US)
  Receive Date: 20190802
  Receipt Date: 20190802
  Transmission Date: 20191005
  Serious: Yes (Hospitalization)
  Sender: FDA-Public Use
  Company Number: None

PATIENT
  Age: 42 Year
  Sex: Male

DRUGS (9)
  1. AZATHIOPRINE. [Concomitant]
     Active Substance: AZATHIOPRINE
  2. COLCHICINE. [Concomitant]
     Active Substance: COLCHICINE
  3. LEVOTHYROXINE. [Concomitant]
     Active Substance: LEVOTHYROXINE
  4. ACETAMINOPHEN. [Concomitant]
     Active Substance: ACETAMINOPHEN
  5. METOPROLOL SUCCINATE. [Concomitant]
     Active Substance: METOPROLOL SUCCINATE
  6. APIXABAN [Concomitant]
     Active Substance: APIXABAN
  7. EPLERENONE. [Concomitant]
     Active Substance: EPLERENONE
  8. POTASSIUM CHLORIDE. [Concomitant]
     Active Substance: POTASSIUM CHLORIDE
  9. QUINIDINE [Suspect]
     Active Substance: QUINIDINE
     Indication: VENTRICULAR TACHYCARDIA
     Route: 048
     Dates: start: 20190114, end: 20190130

REACTIONS (5)
  - Cough [None]
  - Platelet count decreased [None]
  - Weight increased [None]
  - Abdominal distension [None]
  - Asthenia [None]

NARRATIVE: CASE EVENT DATE: 20190130
